FAERS Safety Report 22657778 (Version 1)
Quarter: 2023Q2

REPORT INFORMATION
  Report Type: Spontaneous
  Country: ES (occurrence: ES)
  Receive Date: 20230630
  Receipt Date: 20230630
  Transmission Date: 20230722
  Serious: Yes (Hospitalization, Other)
  Sender: FDA-Public Use
  Company Number: ES-BAXTER-2023BAX025104

PATIENT
  Age: 65 Year
  Sex: Male
  Weight: 89 kg

DRUGS (20)
  1. DOXORUBICIN [Suspect]
     Active Substance: DOXORUBICIN
     Indication: Non-Hodgkin^s lymphoma
     Dosage: 100 MG, EVERY 3 WEEKS
     Route: 042
     Dates: start: 20230529
  2. CYCLOPHOSPHAMIDE [Suspect]
     Active Substance: CYCLOPHOSPHAMIDE
     Indication: Non-Hodgkin^s lymphoma
     Dosage: 1490 MG, EVERY 3 WEEKS
     Route: 042
     Dates: start: 20230529
  3. EPCORITAMAB [Suspect]
     Active Substance: EPCORITAMAB
     Indication: Non-Hodgkin^s lymphoma
     Dosage: 0.16 MG PRIMING DOSE C1, D1, TOTAL
     Route: 058
     Dates: start: 20230529, end: 20230529
  4. EPCORITAMAB [Suspect]
     Active Substance: EPCORITAMAB
     Dosage: 0.8 MG, INTERMEDIATE DOSE C1, D8, TOTAL
     Route: 058
     Dates: start: 20230605, end: 20230605
  5. EPCORITAMAB [Suspect]
     Active Substance: EPCORITAMAB
     Dosage: 48 MG, FULL DOSE C1, D15, EVERY 1 WEEKS
     Route: 058
     Dates: start: 20230612
  6. RITUXIMAB [Suspect]
     Active Substance: RITUXIMAB
     Indication: Non-Hodgkin^s lymphoma
     Dosage: 745 MG, EVERY 3 WEEKS
     Route: 042
     Dates: start: 20230529
  7. VENETOCLAX [Suspect]
     Active Substance: VENETOCLAX
     Indication: Non-Hodgkin^s lymphoma
     Dosage: NOT ADMINISTERED
  8. PREDNISONE [Suspect]
     Active Substance: PREDNISONE
     Indication: Non-Hodgkin^s lymphoma
     Dosage: 100 MG, EVERY 1 DAYS
     Route: 048
     Dates: start: 20230529
  9. POLATUZUMAB VEDOTIN [Suspect]
     Active Substance: POLATUZUMAB VEDOTIN
     Indication: Non-Hodgkin^s lymphoma
     Dosage: 160 MG, EVERY 3 WEEKS
     Route: 042
     Dates: start: 20230529
  10. IBRUTINIB [Suspect]
     Active Substance: IBRUTINIB
     Indication: Non-Hodgkin^s lymphoma
     Dosage: NOT ADMINISTERED
  11. ACYCLOVIR [Concomitant]
     Active Substance: ACYCLOVIR
     Indication: Antiviral prophylaxis
     Dosage: 800 MG, EVERY 1 DAYS
     Route: 065
     Dates: start: 20230526
  12. ALOPURINOL HF [Concomitant]
     Indication: Prophylaxis
     Dosage: 300 MG, EVERY 1 DAYS
     Route: 065
     Dates: start: 20230529
  13. CHOLECALCIFEROL TEVA [Concomitant]
     Indication: Vitamin supplementation
     Dosage: 500 IU, EVERY 1 DAYS, FROM 2023
     Route: 065
  14. IBUPROFEN [Concomitant]
     Active Substance: IBUPROFEN
     Indication: Pain prophylaxis
     Dosage: 600 MG, AS NECESSARY, FROM 2023
     Route: 065
  15. METHYLPREDNISOLONE [Concomitant]
     Active Substance: METHYLPREDNISOLONE
     Indication: Product used for unknown indication
     Dosage: 16 MG FREQUENCY NOT REPORTED
     Route: 065
     Dates: start: 20230529
  16. ONDANSETRON [Concomitant]
     Active Substance: ONDANSETRON
     Indication: Premedication
     Dosage: 8 MG, AS NECESSARY
     Route: 065
     Dates: start: 20230529
  17. ONDANSETRON [Concomitant]
     Active Substance: ONDANSETRON
     Indication: Prophylaxis of nausea and vomiting
     Dosage: 8 MG FREQUENCY NOT REPORTED
     Route: 065
     Dates: start: 20230529
  18. SULFAMETHOXAZOLE\TRIMETHOPRIM [Concomitant]
     Active Substance: SULFAMETHOXAZOLE\TRIMETHOPRIM
     Indication: Prophylaxis
     Dosage: 800 MG FREQUENCY NOT REPORTED
     Route: 065
     Dates: start: 20230526
  19. TRIMETHOPRIM NTN [Concomitant]
     Indication: Prophylaxis
     Dosage: 160 MG FREQUENCY NOT REPORTED
     Route: 065
     Dates: start: 20230526
  20. DEXCHLORPHENIRAMINE [Concomitant]
     Active Substance: DEXCHLORPHENIRAMINE
     Indication: Premedication
     Dosage: 5 MG FREQUENCY NOT REPORTED
     Route: 065
     Dates: start: 20230529

REACTIONS (2)
  - Cytokine release syndrome [Recovered/Resolved]
  - Pyrexia [Recovered/Resolved]

NARRATIVE: CASE EVENT DATE: 20230612
